FAERS Safety Report 25790689 (Version 1)
Quarter: 2025Q3

REPORT INFORMATION
  Report Type: Spontaneous
  Country: US (occurrence: US)
  Receive Date: 20250911
  Receipt Date: 20250911
  Transmission Date: 20251020
  Serious: Yes (Other)
  Sender: GLAXOSMITHKLINE
  Company Number: US-GSK-US2025AMR111184

PATIENT
  Sex: Female

DRUGS (2)
  1. BENLYSTA [Suspect]
     Active Substance: BELIMUMAB
     Indication: Systemic lupus erythematosus
     Dosage: 200 MG, WE,  (1MLX4)
  2. MIRENA [Concomitant]
     Active Substance: LEVONORGESTREL
     Indication: Complication associated with device

REACTIONS (2)
  - Systemic lupus erythematosus [Recovered/Resolved]
  - Gastric infection [Unknown]
